FAERS Safety Report 6807397-3 (Version None)
Quarter: 2010Q2

REPORT INFORMATION
  Report Type: 
  Country: None (occurrence: None)
  Receive Date: 20100629
  Receipt Date: 20080911
  Transmission Date: 20101027
  Serious: No
  Sender: FDA-Public Use
  Company Number: US-PFIZER INC-2008076803

PATIENT
  Sex: Female

DRUGS (2)
  1. MEDROL [Suspect]
     Dates: start: 20080909
  2. STRATTERA [Concomitant]

REACTIONS (2)
  - ERYTHEMA [None]
  - NASOPHARYNGITIS [None]
